FAERS Safety Report 9383845 (Version 1)
Quarter: 2013Q3

REPORT INFORMATION
  Report Type: Spontaneous
  Country: SE (occurrence: SE)
  Receive Date: 20130704
  Receipt Date: 20130704
  Transmission Date: 20140515
  Serious: Yes (Other)
  Sender: FDA-Public Use
  Company Number: SE-MERCK-1307SWE001454

PATIENT
  Age: 67 Year
  Sex: Male

DRUGS (6)
  1. ENALAPRIL MALEATE [Suspect]
     Dosage: UNK
     Route: 048
  2. ZESTRIL [Suspect]
     Dosage: UNK
     Route: 048
  3. AMLODIPINE BESYLATE [Suspect]
     Dosage: UNK
  4. KREDEX [Suspect]
     Dosage: UNK
  5. ATACAND [Suspect]
     Dosage: UNK
  6. TRAMADOL HYDROCHLORIDE [Concomitant]
     Dosage: UNK

REACTIONS (1)
  - Polyneuropathy [Not Recovered/Not Resolved]
